FAERS Safety Report 21871950 (Version 1)
Quarter: 2023Q1

REPORT INFORMATION
  Report Type: Spontaneous
  Country: US (occurrence: US)
  Receive Date: 20230117
  Receipt Date: 20230117
  Transmission Date: 20230418
  Serious: Yes (Hospitalization)
  Sender: FDA-Public Use
  Company Number: US-BIOVITRUM-2023US00321

PATIENT
  Sex: Male
  Weight: 8 kg

DRUGS (8)
  1. SYNAGIS [Suspect]
     Active Substance: PALIVIZUMAB
     Indication: Corrected transposition of great vessels
     Dosage: 100 MG SDV/INJ PF 1 ML 1^S, 50 MG SDV/INJ PF 0.5 ML
     Dates: start: 20221115
  2. FAMOTIDINE [Concomitant]
     Active Substance: FAMOTIDINE
  3. POTASSIUM CHLORIDE [Concomitant]
     Active Substance: POTASSIUM CHLORIDE
  4. ERYTHROMYCIN ETHYLSUCC [Concomitant]
  5. PROPRANOLOL HYDROCHLORIDE [Concomitant]
     Active Substance: PROPRANOLOL HYDROCHLORIDE
  6. SYNAGIS [Suspect]
     Active Substance: PALIVIZUMAB
     Indication: Heart disease congenital
  7. CAROSPIR [Concomitant]
     Active Substance: SPIRONOLACTONE
  8. SODIUM CHLORIDE [Concomitant]
     Active Substance: SODIUM CHLORIDE

REACTIONS (1)
  - Respiratory syncytial virus infection [Unknown]
